FAERS Safety Report 8924348 (Version 1)
Quarter: 2012Q4

REPORT INFORMATION
  Report Type: 
  Country: JP (occurrence: JP)
  Receive Date: 20121126
  Receipt Date: 20121126
  Transmission Date: 20130627
  Serious: Yes (Other)
  Sender: FDA-Public Use
  Company Number: JP-GLAXOSMITHKLINE-B0846765A

PATIENT
  Sex: Female

DRUGS (3)
  1. LAMICTAL [Suspect]
     Indication: EPILEPSY
     Dosage: 60MG Twice per day
     Route: 048
     Dates: start: 20090629
  2. FOLIAMIN [Concomitant]
     Dosage: 5MG Per day
     Route: 065
  3. MAGMITT [Concomitant]
     Dosage: 100MG Three times per day
     Route: 048

REACTIONS (3)
  - Caesarean section [Unknown]
  - Exposure during pregnancy [Unknown]
  - Live birth [Unknown]
